FAERS Safety Report 9538844 (Version 1)
Quarter: 2013Q2

REPORT INFORMATION
  Report Type: Spontaneous
  Country: US (occurrence: None)
  Receive Date: 20130507
  Receipt Date: 20130507
  Transmission Date: 20140414
  Serious: Yes (Other)
  Sender: FDA-Public Use
  Company Number: PHEH2012US025703

PATIENT
  Sex: Female

DRUGS (5)
  1. AFINITOR (RAD) UNKNOWN [Suspect]
     Route: 048
  2. XGEVA (DENOSUMAB) [Concomitant]
  3. AROMASIN (EXEMESTANE) [Concomitant]
  4. IRON (IRON) [Concomitant]
  5. MULTIVIT (VITAMINS NOS) [Concomitant]

REACTIONS (1)
  - Stomatitis [None]
